FAERS Safety Report 13258519 (Version 1)
Quarter: 2017Q1

REPORT INFORMATION
  Report Type: Spontaneous
  Country: CN (occurrence: CN)
  Receive Date: 20170222
  Receipt Date: 20170222
  Transmission Date: 20170428
  Serious: Yes (Other)
  Sender: FDA-Public Use
  Company Number: CN-B.I. PHARMACEUTICALS,INC./RIDGEFIELD-2017-BI-008666

PATIENT
  Age: 79 Year
  Sex: Female
  Weight: 78 kg

DRUGS (4)
  1. SALBUTAMOL SULFATE [Suspect]
     Active Substance: ALBUTEROL SULFATE
     Indication: DRUG THERAPY
     Route: 055
     Dates: start: 20161115, end: 20161117
  2. BROMHEXINE HYDROCHLORIDE [Suspect]
     Active Substance: BROMHEXINE HYDROCHLORIDE
     Indication: DRUG THERAPY
     Route: 055
     Dates: start: 20161115, end: 20161117
  3. ATROVENT [Suspect]
     Active Substance: IPRATROPIUM BROMIDE
     Indication: DRUG THERAPY
     Route: 055
     Dates: start: 20161115, end: 20161117
  4. BUDESONIDE. [Suspect]
     Active Substance: BUDESONIDE
     Indication: DRUG THERAPY
     Route: 055
     Dates: start: 20161115, end: 20161117

REACTIONS (1)
  - Respiratory distress [Recovering/Resolving]

NARRATIVE: CASE EVENT DATE: 20161117
